FAERS Safety Report 23397377 (Version 3)
Quarter: 2024Q1

REPORT INFORMATION
  Report Type: Spontaneous
  Country: CA (occurrence: CA)
  Receive Date: 20240112
  Receipt Date: 20240228
  Transmission Date: 20240410
  Serious: Yes (Other)
  Sender: FDA-Public Use
  Company Number: CA-PFIZER INC-202300434549

PATIENT
  Age: 39 Year
  Sex: Female
  Weight: 99.1 kg

DRUGS (9)
  1. RUXIENCE [Suspect]
     Active Substance: RITUXIMAB-PVVR
     Indication: Granulomatosis with polyangiitis
     Dosage: 810 MG, EVERY 4 WEEKS (X4 WEEKS),(800MG, FIRST DOSE )
     Route: 042
     Dates: start: 20231214
  2. RUXIENCE [Suspect]
     Active Substance: RITUXIMAB-PVVR
     Dosage: 810 MG, EVERY 4 WEEKS (X4 WEEKS),(800MG, FIRST DOSE )
     Route: 042
     Dates: start: 20231214
  3. RUXIENCE [Suspect]
     Active Substance: RITUXIMAB-PVVR
     Dosage: 810 MG, EVERY 4 WEEKS (X4 WEEKS),(800MG, FIRST DOSE )
     Route: 042
     Dates: start: 20231214
  4. RUXIENCE [Suspect]
     Active Substance: RITUXIMAB-PVVR
     Dosage: 802.5 MG, EVERY 4 WEEKS (X4 WEEKS), NOT YET STARTED
     Route: 042
  5. RUXIENCE [Suspect]
     Active Substance: RITUXIMAB-PVVR
     Dosage: 810 MG, EVERY 4 WEEKS
     Route: 042
     Dates: start: 20231230
  6. RUXIENCE [Suspect]
     Active Substance: RITUXIMAB-PVVR
     Dosage: 810 MG, EVERY 4 WEEKS
     Route: 042
     Dates: start: 20231230
  7. RUXIENCE [Suspect]
     Active Substance: RITUXIMAB-PVVR
     Dosage: 810 MG, EVERY 4 WEEKS (800 MG, WEEKLY)
     Route: 042
     Dates: start: 20240106
  8. RUXIENCE [Suspect]
     Active Substance: RITUXIMAB-PVVR
     Dosage: 810 MG, EVERY 4 WEEKS (800 MG, WEEKLY)
     Route: 042
     Dates: start: 20240106
  9. BENADRYL [Concomitant]
     Active Substance: DIPHENHYDRAMINE HYDROCHLORIDE
     Indication: Premedication
     Dosage: UNK
     Route: 042
     Dates: start: 20240106, end: 20240106

REACTIONS (9)
  - Nausea [Recovered/Resolved]
  - Vomiting [Recovered/Resolved]
  - Off label use [Unknown]
  - Off label use [Unknown]
  - Fatigue [Unknown]
  - Ear pruritus [Recovered/Resolved]
  - Throat irritation [Recovered/Resolved]
  - Muscle spasms [Recovered/Resolved]
  - Headache [Recovered/Resolved]

NARRATIVE: CASE EVENT DATE: 20231214
